FAERS Safety Report 14003147 (Version 1)
Quarter: 2017Q3

REPORT INFORMATION
  Report Type: Spontaneous
  Country: US (occurrence: US)
  Receive Date: 20170922
  Receipt Date: 20170922
  Transmission Date: 20171128
  Serious: No
  Sender: FDA-Public Use
  Company Number: US-MAYNE PHARMA-2017MYN000713

PATIENT

DRUGS (1)
  1. CLONIDINE. [Suspect]
     Active Substance: CLONIDINE
     Indication: HYPERTENSION
     Dosage: 0.3 MG, QD
     Route: 062
     Dates: end: 201702

REACTIONS (4)
  - Application site erythema [Unknown]
  - Application site pruritus [Unknown]
  - Application site swelling [Unknown]
  - Application site discolouration [Not Recovered/Not Resolved]
